FAERS Safety Report 21531604 (Version 1)
Quarter: 2022Q4

REPORT INFORMATION
  Report Type: Spontaneous
  Country: US (occurrence: None)
  Receive Date: 20221028
  Receipt Date: 20221028
  Transmission Date: 20230113
  Serious: No
  Sender: FDA-Public Use
  Company Number: None

PATIENT
  Age: 77 Year
  Sex: Male
  Weight: 104 kg

DRUGS (1)
  1. MYCOPHENOLATE MOFETIL [Suspect]
     Active Substance: MYCOPHENOLATE MOFETIL
     Indication: Dermatitis
     Dosage: 500 MG BID PO
     Route: 048
     Dates: start: 20220504, end: 20220513

REACTIONS (6)
  - Presyncope [None]
  - Hypotension [None]
  - Sinus bradycardia [None]
  - Bundle branch block left [None]
  - Fall [None]
  - Hypoaesthesia [None]

NARRATIVE: CASE EVENT DATE: 20220513
